FAERS Safety Report 18655299 (Version 2)
Quarter: 2020Q4

REPORT INFORMATION
  Report Type: Spontaneous
  Country: US (occurrence: US)
  Receive Date: 20201223
  Receipt Date: 20201228
  Transmission Date: 20210114
  Serious: No
  Sender: FDA-Public Use
  Company Number: US-PFIZER INC-2020505384

PATIENT
  Age: 32 Year
  Sex: Female

DRUGS (2)
  1. EUCRISA [Suspect]
     Active Substance: CRISABOROLE
     Indication: DERMATITIS
  2. EUCRISA [Suspect]
     Active Substance: CRISABOROLE
     Indication: DERMATITIS ATOPIC
     Dosage: 2X/DAY (APPLY A THIN LAYER TO THE AFFECTED AREAS EXTERNALLY DAILY FOR 30 DAYS)
     Route: 061

REACTIONS (7)
  - Scratch [Unknown]
  - Sensitivity to weather change [Unknown]
  - Papule [Unknown]
  - Lichenification [Unknown]
  - Pruritus [Not Recovered/Not Resolved]
  - Skin burning sensation [Unknown]
  - Condition aggravated [Unknown]
